FAERS Safety Report 4971931-9 (Version None)
Quarter: 2006Q2

REPORT INFORMATION
  Report Type: 
  Country: None (occurrence: None)
  Receive Date: 20060413
  Receipt Date: 20051025
  Transmission Date: 20061013
  Serious: Yes (Hospitalization)
  Sender: FDA-Public Use
  Company Number: US-MERCK-0510USA09219

PATIENT
  Age: 65 Year
  Sex: Male
  Weight: 96 kg

DRUGS (4)
  1. VIOXX [Suspect]
     Indication: ARTHRITIS
     Route: 048
     Dates: start: 20000925, end: 20040901
  2. VIOXX [Suspect]
     Route: 048
     Dates: start: 20000925, end: 20040901
  3. VIOXX [Suspect]
     Route: 048
     Dates: start: 20000925, end: 20040901
  4. VIOXX [Suspect]
     Route: 048
     Dates: start: 20000925, end: 20040901

REACTIONS (21)
  - ACUTE MYOCARDIAL INFARCTION [None]
  - ATRIAL FIBRILLATION [None]
  - CARDIOVASCULAR DISORDER [None]
  - CATHETER SITE INFECTION [None]
  - CERVICOBRACHIAL SYNDROME [None]
  - CORONARY ARTERY DISEASE [None]
  - CORONARY ARTERY OCCLUSION [None]
  - DILATATION ATRIAL [None]
  - DIZZINESS [None]
  - EPIDIDYMITIS [None]
  - HEADACHE [None]
  - HYDROPNEUMOTHORAX [None]
  - HYPERLIPIDAEMIA [None]
  - HYPERTENSION [None]
  - MITRAL VALVE INCOMPETENCE [None]
  - MYOCARDIAL ISCHAEMIA [None]
  - OVERDOSE [None]
  - PAIN IN EXTREMITY [None]
  - PROSTATIC DISORDER [None]
  - PULMONARY EMBOLISM [None]
  - TRICUSPID VALVE INCOMPETENCE [None]
